FAERS Safety Report 4551290-6 (Version None)
Quarter: 2005Q1

REPORT INFORMATION
  Report Type: 
  Country: None (occurrence: None)
  Receive Date: 20050111
  Receipt Date: 20050111
  Transmission Date: 20050727
  Serious: Yes (Hospitalization)
  Sender: FDA-Public Use
  Company Number: None

PATIENT
  Sex: Male
  Weight: 83.4 kg

DRUGS (1)
  1. RITUXIMAB [Suspect]

REACTIONS (7)
  - BLOOD PRESSURE DECREASED [None]
  - CHEST DISCOMFORT [None]
  - CHEST PAIN [None]
  - CREATINE PHOSPHOKINASE DECREASED [None]
  - DIZZINESS [None]
  - DYSPNOEA EXERTIONAL [None]
  - WHITE BLOOD CELL COUNT DECREASED [None]
